FAERS Safety Report 5707351-9 (Version None)
Quarter: 2008Q2

REPORT INFORMATION
  Report Type: 
  Country: None (occurrence: None)
  Receive Date: 20080416
  Receipt Date: 20080407
  Transmission Date: 20081010
  Serious: Yes (Life-Threatening, Hospitalization)
  Sender: FDA-Public Use
  Company Number: FR-ASTRAZENECA-2008CG00525

PATIENT
  Age: 59 Year
  Sex: Male

DRUGS (7)
  1. DIPRIVAN [Suspect]
     Indication: ANAESTHESIA
     Route: 042
     Dates: start: 20080115, end: 20080115
  2. SUFENTANIL CITRATE [Suspect]
     Indication: ANAESTHESIA
     Route: 042
     Dates: start: 20080115, end: 20080115
  3. NIMBEX [Suspect]
     Indication: ANAESTHESIA
     Route: 042
     Dates: start: 20080115, end: 20080115
  4. PROCORALAN [Suspect]
     Route: 048
     Dates: start: 20071101
  5. IXEL [Concomitant]
  6. FLECAINIDE ACETATE [Concomitant]
  7. FENOFIBRATE [Concomitant]

REACTIONS (1)
  - CIRCULATORY COLLAPSE [None]
